FAERS Safety Report 8341992-8 (Version None)
Quarter: 2012Q1

REPORT INFORMATION
  Report Type: 
  Country: None (occurrence: None)
  Receive Date: 20120330
  Receipt Date: 20030128
  Transmission Date: 20120608
  Serious: Yes (Hospitalization, Other)
  Sender: FDA-Public Use
  Company Number: PHEH2003US01075

PATIENT
  Age: 75 Year
  Sex: Female

DRUGS (3)
  1. PLENDIL [Concomitant]
  2. LESCOL ^NOVARTIS^ (FLUVASTATIN SODIUM) [Concomitant]
  3. EXELON [Suspect]
     Indication: DEMENTIA ALZHEIMER'S TYPE
     Dosage: 3 MG, BID
     Dates: start: 20001111

REACTIONS (4)
  - THROMBOSIS [None]
  - SYNCOPE [None]
  - TRANSIENT ISCHAEMIC ATTACK [None]
  - OEDEMA PERIPHERAL [None]
